FAERS Safety Report 4334277-8 (Version None)
Quarter: 2004Q2

REPORT INFORMATION
  Report Type: 
  Country: None (occurrence: None)
  Receive Date: 20040405
  Receipt Date: 20040322
  Transmission Date: 20050107
  Serious: Yes (Death, Life-Threatening, Hospitalization)
  Sender: FDA-Public Use
  Company Number: 03P-163-0225455-01

PATIENT
  Age: 39 Year
  Sex: Male

DRUGS (8)
  1. NORVIR [Suspect]
     Indication: HIV INFECTION
     Dosage: 200 MG, 2 IN 1 D, PER ORAL
     Route: 048
     Dates: start: 20030620, end: 20030903
  2. TIPRANAVIR [Concomitant]
  3. ZIDOVUDINE W/LAMIVUDINE [Concomitant]
  4. VIREAD [Concomitant]
  5. MORPHINE SULFATE [Concomitant]
  6. LOMOTIL [Concomitant]
  7. METOCLOPRAMIDE [Concomitant]
  8. TENOFOVIR [Concomitant]

REACTIONS (8)
  - CACHEXIA [None]
  - CATHETER RELATED INFECTION [None]
  - GASTROENTERITIS CRYPTOSPORIDIAL [None]
  - HYPOVOLAEMIA [None]
  - METABOLIC ACIDOSIS [None]
  - RENAL FAILURE ACUTE [None]
  - STAPHYLOCOCCAL BACTERAEMIA [None]
  - WEIGHT DECREASED [None]
